FAERS Safety Report 11199329 (Version 1)
Quarter: 2015Q2

REPORT INFORMATION
  Report Type: Spontaneous
  Country: US (occurrence: None)
  Receive Date: 20150616
  Receipt Date: 20150616
  Transmission Date: 20150821
  Serious: Yes (Life-Threatening, Hospitalization, Disabling)
  Sender: FDA-Public Use
  Company Number: None

PATIENT
  Sex: Female
  Weight: 39.46 kg

DRUGS (1)
  1. ANTABUSE [Suspect]
     Active Substance: DISULFIRAM

REACTIONS (8)
  - Gout [None]
  - Anaemia [None]
  - Arrhythmia [None]
  - Cystitis [None]
  - Syncope [None]
  - Shock [None]
  - Dehydration [None]
  - Peripheral swelling [None]
